FAERS Safety Report 9371705 (Version 2)
Quarter: 2013Q3

REPORT INFORMATION
  Report Type: Spontaneous
  Country: US (occurrence: US)
  Receive Date: 20130627
  Receipt Date: 20130812
  Transmission Date: 20140515
  Serious: Yes (Other)
  Sender: FDA-Public Use
  Company Number: US-PFIZER INC-2013191599

PATIENT
  Age: 30 Year
  Sex: Female

DRUGS (10)
  1. CHANTIX [Suspect]
     Dosage: 0.5 MG, UNK
     Dates: start: 201306, end: 2013
  2. CHANTIX [Suspect]
     Dosage: 0.5 MG, 2X/DAY, (1 IN MORNING AND 1 IN EVENING FOR 4-7 DAYS)
     Dates: start: 2013, end: 2013
  3. CHANTIX [Suspect]
     Dosage: 1 MG, TOOK IN MORNING
     Dates: start: 2013
  4. KEPPRA [Concomitant]
     Indication: CONVULSION
     Dosage: UNK, AS NEEDED
  5. XANAX [Concomitant]
     Indication: ANXIETY
     Dosage: 1 MG, 2X/DAY
  6. XANAX [Concomitant]
     Indication: PANIC ATTACK
  7. ADDERALL [Concomitant]
     Indication: ATTENTION DEFICIT/HYPERACTIVITY DISORDER
     Dosage: 30 MG DAILY
  8. IBUPROFEN [Concomitant]
     Indication: TOOTHACHE
     Dosage: UNKNOWN DOSE AS 2-3 PILLS, AS NEEDED
     Dates: start: 2013
  9. METHADONE [Concomitant]
     Dosage: 90 MG, DAILY
  10. MIRENA [Concomitant]
     Dosage: UNK

REACTIONS (15)
  - Suicidal ideation [Unknown]
  - Personality change [Unknown]
  - Crying [Unknown]
  - Depression [Recovered/Resolved]
  - Feeling abnormal [Unknown]
  - Hallucination [Unknown]
  - Psychomotor hyperactivity [Unknown]
  - Confusional state [Unknown]
  - Abnormal behaviour [Unknown]
  - Logorrhoea [Unknown]
  - Drug withdrawal syndrome [Unknown]
  - Memory impairment [Unknown]
  - Emotional disorder [Unknown]
  - Amnesia [Unknown]
  - Decreased appetite [Unknown]
